FAERS Safety Report 5558354-9 (Version None)
Quarter: 2007Q4

REPORT INFORMATION
  Report Type: 
  Country: None (occurrence: None)
  Receive Date: 20071214
  Receipt Date: 20071204
  Transmission Date: 20080405
  Serious: Yes (Death)
  Sender: FDA-Public Use
  Company Number: US-PFIZER INC-2007102075

PATIENT
  Sex: Male
  Weight: 172.4 kg

DRUGS (5)
  1. XANAX [Suspect]
  2. MORPHINE SULFATE [Suspect]
     Indication: BACK PAIN
  3. NORCO [Suspect]
     Indication: BACK PAIN
     Dosage: FREQ: UP TO 4 TIMES A DAY
  4. KLONOPIN [Suspect]
  5. ANTIHYPERTENSIVES [Concomitant]

REACTIONS (4)
  - COMPLETED SUICIDE [None]
  - HEADACHE [None]
  - NECK PAIN [None]
  - OVERDOSE [None]
